FAERS Safety Report 5730272-2 (Version None)
Quarter: 2008Q2

REPORT INFORMATION
  Report Type: 
  Country: None (occurrence: None)
  Receive Date: 20080505
  Receipt Date: 20080505
  Transmission Date: 20081010
  Serious: Yes (Hospitalization)
  Sender: FDA-Public Use
  Company Number: None

PATIENT
  Age: 71 Year
  Sex: Female
  Weight: 58 kg

DRUGS (1)
  1. DIGITEX .0125 [Suspect]
     Indication: HEART RATE IRREGULAR
     Dosage: 1 PILL EVERY OTHER DAY 3 WKLY PO
     Route: 048
     Dates: start: 20080329, end: 20080414

REACTIONS (4)
  - BLOOD PRESSURE DECREASED [None]
  - HEART RATE DECREASED [None]
  - PULSE ABSENT [None]
  - THERAPEUTIC AGENT TOXICITY [None]
